FAERS Safety Report 19058750 (Version 2)
Quarter: 2021Q3

REPORT INFORMATION
  Report Type: Spontaneous
  Country: NL (occurrence: NL)
  Receive Date: 20210325
  Receipt Date: 20210811
  Transmission Date: 20211014
  Serious: Yes (Other)
  Sender: FDA-Public Use
  Company Number: NL-ELI_LILLY_AND_COMPANY-NL202103009749

PATIENT
  Age: 26 Year
  Sex: Female
  Weight: 67 kg

DRUGS (6)
  1. OLANZAPINE. [Suspect]
     Active Substance: OLANZAPINE
     Dosage: 7.5 MG, DAILY (1 DD)
     Route: 048
     Dates: start: 20201208
  2. OLANZAPINE. [Suspect]
     Active Substance: OLANZAPINE
     Dosage: 2.5 MG, DAILY
     Route: 048
     Dates: start: 202103
  3. BIPERIDEN [Concomitant]
     Active Substance: BIPERIDEN
     Dosage: 1 MG, TID (3DD)
  4. XEPLION [Suspect]
     Active Substance: PALIPERIDONE PALMITATE
     Indication: PRODUCT USED FOR UNKNOWN INDICATION
     Dosage: 150 MG, WEEKLY (1/W)
     Route: 030
     Dates: start: 20200511, end: 20201101
  5. OLANZAPINE. [Suspect]
     Active Substance: OLANZAPINE
     Indication: PRODUCT USED FOR UNKNOWN INDICATION
     Dosage: 10 MG, DAILY (1 DD)
     Route: 048
     Dates: start: 20200603, end: 20201208
  6. TREVICTA [Suspect]
     Active Substance: PALIPERIDONE PALMITATE
     Indication: PRODUCT USED FOR UNKNOWN INDICATION
     Dosage: 525 MG, MONTHLY (1/M)
     Route: 030
     Dates: start: 20201118, end: 20210515

REACTIONS (4)
  - Dry eye [Unknown]
  - Blepharospasm [Recovering/Resolving]
  - Eye pain [Unknown]
  - Tardive dyskinesia [Unknown]

NARRATIVE: CASE EVENT DATE: 202008
